FAERS Safety Report 6362042-9 (Version None)
Quarter: 2009Q3

REPORT INFORMATION
  Report Type: 
  Country: None (occurrence: None)
  Receive Date: 20090918
  Receipt Date: 20090916
  Transmission Date: 20100115
  Serious: Yes (Hospitalization)
  Sender: FDA-Public Use
  Company Number: US-GENENTECH-287753

PATIENT
  Sex: Female
  Weight: 81.179 kg

DRUGS (13)
  1. BEVACIZUMAB [Suspect]
     Indication: GLIOBLASTOMA MULTIFORME
     Dosage: 780 MG, UNK
     Route: 042
     Dates: start: 20090520
  2. TEMODAR [Suspect]
     Indication: GLIOBLASTOMA MULTIFORME
     Dosage: 150 MG, UNK
     Route: 048
     Dates: start: 20090520, end: 20090704
  3. KEPPRA [Concomitant]
     Indication: CONVULSION
     Dosage: 1500 MG, BID
     Route: 048
     Dates: start: 20090409, end: 20090724
  4. LORAZEPAM [Concomitant]
     Indication: DRUG USE FOR UNKNOWN INDICATION
     Dosage: 0.5 MG, UNK
     Dates: start: 20090515
  5. PEPCID [Concomitant]
     Indication: DRUG USE FOR UNKNOWN INDICATION
     Dosage: UNK
     Dates: start: 20090409
  6. DECADRON [Concomitant]
     Indication: DRUG USE FOR UNKNOWN INDICATION
     Dosage: UNK
     Dates: start: 20090409
  7. DILANTIN [Concomitant]
     Indication: DRUG USE FOR UNKNOWN INDICATION
  8. ZOLPIDEM [Concomitant]
     Indication: DRUG USE FOR UNKNOWN INDICATION
  9. MYLANTA PRODUCT NOS [Concomitant]
     Indication: DRUG USE FOR UNKNOWN INDICATION
  10. PROCHLORPERAZINE [Concomitant]
     Indication: NAUSEA
     Dosage: 10 MG, PRN
     Dates: start: 20090515
  11. DIVALPROEX SODIUM [Concomitant]
     Indication: DRUG USE FOR UNKNOWN INDICATION
     Dosage: 750 MG, QD
     Dates: start: 20090812
  12. DEPAKOTE [Concomitant]
     Indication: DRUG USE FOR UNKNOWN INDICATION
     Dosage: UNK
     Route: 048
     Dates: start: 20090812
  13. METOPROLOL TARTRATE [Concomitant]
     Indication: DRUG USE FOR UNKNOWN INDICATION
     Dosage: 75 MG, BID
     Dates: start: 20090812

REACTIONS (2)
  - CONVULSION [None]
  - SYNCOPE [None]
